FAERS Safety Report 8616597-1 (Version None)
Quarter: 2012Q3

REPORT INFORMATION
  Report Type: 
  Country: None (occurrence: None)
  Receive Date: 20120823
  Receipt Date: 20120821
  Transmission Date: 20120928
  Serious: Yes (Hospitalization)
  Sender: FDA-Public Use
  Company Number: DE-ROCHE-1105778

PATIENT
  Sex: Male
  Weight: 104 kg

DRUGS (2)
  1. MABTHERA [Suspect]
     Indication: LYMPHOMA
     Dates: start: 20110221, end: 20110420
  2. BENDAMUSTINE HYDROCHLORIDE [Suspect]
     Indication: LYMPHOMA
     Dates: start: 20110221, end: 20110420

REACTIONS (1)
  - PULMONARY EMBOLISM [None]
